FAERS Safety Report 7879667-1 (Version None)
Quarter: 2011Q4

REPORT INFORMATION
  Report Type: 
  Country: None (occurrence: None)
  Receive Date: 20111101
  Receipt Date: 20111021
  Transmission Date: 20120403
  Serious: Yes (Hospitalization)
  Sender: FDA-Public Use
  Company Number: IT-VIIV HEALTHCARE LIMITED-B0758159A

PATIENT
  Sex: Male

DRUGS (5)
  1. REYATAZ [Suspect]
     Indication: HIV INFECTION
     Dosage: 200MG PER DAY
     Route: 048
     Dates: start: 20090101, end: 20110511
  2. METFORMIN HCL [Suspect]
     Indication: TYPE 2 DIABETES MELLITUS
     Dosage: 2000MG PER DAY
     Route: 048
     Dates: start: 20090101, end: 20110511
  3. HUMALOG [Concomitant]
     Indication: TYPE 2 DIABETES MELLITUS
     Dosage: 14U PER DAY
     Route: 065
  4. COMBIVIR [Suspect]
     Indication: HIV INFECTION
     Dosage: 1U PER DAY
     Route: 048
     Dates: start: 20090101, end: 20110511
  5. FENOFIBRATE [Suspect]
     Indication: HYPERLIPIDAEMIA
     Dosage: 200MG PER DAY
     Route: 048
     Dates: start: 20090101, end: 20110511

REACTIONS (1)
  - PANCREATITIS ACUTE [None]
